FAERS Safety Report 6420036-9 (Version None)
Quarter: 2009Q4

REPORT INFORMATION
  Report Type: 
  Country: None (occurrence: None)
  Receive Date: 20091029
  Receipt Date: 20090526
  Transmission Date: 20100525
  Serious: No
  Sender: FDA-Public Use
  Company Number: A0786112A

PATIENT
  Age: 55 Year
  Sex: Female

DRUGS (3)
  1. IMITREX [Suspect]
     Indication: MIGRAINE
     Route: 048
     Dates: start: 20030101
  2. TOPAMAX [Concomitant]
  3. EFFEXOR [Concomitant]

REACTIONS (1)
  - DRUG INEFFECTIVE [None]
